FAERS Safety Report 16469937 (Version 2)
Quarter: 2019Q3

REPORT INFORMATION
  Report Type: Spontaneous
  Country: US (occurrence: US)
  Receive Date: 20190624
  Receipt Date: 20190925
  Transmission Date: 20191004
  Serious: No
  Sender: FDA-Public Use
  Company Number: US-SCILEX PHARMACEUTICALS INC.-2019SCX00044

PATIENT
  Age: 30 Year
  Sex: Female
  Weight: 78.91 kg

DRUGS (1)
  1. ZTLIDO [Suspect]
     Active Substance: LIDOCAINE
     Indication: MUSCULOSKELETAL PAIN
     Dosage: 1X/DAY (12 HOURS ON, 12 HOURS OFF)
     Route: 062
     Dates: start: 20190308, end: 20190309

REACTIONS (2)
  - Dermatitis contact [Recovered/Resolved]
  - Off label use [Recovered/Resolved]

NARRATIVE: CASE EVENT DATE: 201903
